FAERS Safety Report 20733506 (Version 1)
Quarter: 2022Q2

REPORT INFORMATION
  Report Type: Spontaneous
  Country: US (occurrence: US)
  Receive Date: 20220421
  Receipt Date: 20220421
  Transmission Date: 20220721
  Serious: No
  Sender: FDA-Public Use
  Company Number: US-CIPLA LTD.-2022US01792

PATIENT

DRUGS (1)
  1. ALBUTEROL [Suspect]
     Active Substance: ALBUTEROL
     Indication: Bronchospasm
     Dosage: UNK (FEB- UNK YEAR)
     Route: 065

REACTIONS (4)
  - Therapeutic product effect incomplete [Unknown]
  - Extra dose administered [Unknown]
  - Product shape issue [Unknown]
  - Product delivery mechanism issue [Unknown]
